FAERS Safety Report 9704645 (Version 1)
Quarter: 2013Q4

REPORT INFORMATION
  Report Type: Spontaneous
  Country: SE (occurrence: SE)
  Receive Date: 20131122
  Receipt Date: 20131122
  Transmission Date: 20140711
  Serious: Yes (Other)
  Sender: FDA-Public Use
  Company Number: SE-009507513-1311SWE006920

PATIENT
  Age: 33 Year
  Sex: Female

DRUGS (1)
  1. NEXPLANON [Suspect]
     Dosage: UNK
     Route: 059
     Dates: start: 201209

REACTIONS (3)
  - Post procedural haemorrhage [Not Recovered/Not Resolved]
  - Abdominal operation [Unknown]
  - Syncope [Not Recovered/Not Resolved]
